FAERS Safety Report 17765113 (Version 1)
Quarter: 2020Q2

REPORT INFORMATION
  Report Type: Spontaneous
  Country: DE (occurrence: DE)
  Receive Date: 20200511
  Receipt Date: 20200511
  Transmission Date: 20200714
  Serious: Yes (Life-Threatening, Other)
  Sender: FDA-Public Use
  Company Number: DE-BAYER-2020-072318

PATIENT
  Age: 45 Year
  Sex: Female
  Weight: 57 kg

DRUGS (15)
  1. GADOVIST [Suspect]
     Active Substance: GADOBUTROL
     Indication: NEUROSARCOIDOSIS
     Dosage: EACH 6 ML
     Route: 042
     Dates: start: 20110530, end: 20181111
  2. GADOVIST [Suspect]
     Active Substance: GADOBUTROL
     Indication: MAGNETIC RESONANCE IMAGING BRAIN
     Dosage: 6 ML
     Route: 042
     Dates: start: 20141203
  3. GADOVIST [Suspect]
     Active Substance: GADOBUTROL
     Indication: MAGNETIC RESONANCE IMAGING SPINAL
  4. DOTAREM [Suspect]
     Active Substance: GADOTERATE MEGLUMINE
     Indication: MAGNETIC RESONANCE IMAGING BRAIN
     Dosage: 12 ML I.V.
     Dates: start: 20141113
  5. DOTAREM [Suspect]
     Active Substance: GADOTERATE MEGLUMINE
     Indication: MAGNETIC RESONANCE IMAGING BRAIN
     Dosage: 12 ML
     Route: 042
     Dates: start: 20141113, end: 20141113
  6. MAGNEVIST [Suspect]
     Active Substance: GADOPENTETATE DIMEGLUMINE
     Indication: NEUROSARCOIDOSIS
     Dosage: MAGNEVIST 14 ML
     Route: 042
     Dates: start: 20100416
  7. CLARISCAN [Suspect]
     Active Substance: GADOTERATE MEGLUMINE
     Indication: MAGNETIC RESONANCE IMAGING BRAIN
     Dosage: 12 ML
     Route: 042
     Dates: start: 20180924
  8. CLARISCAN [Suspect]
     Active Substance: GADOTERATE MEGLUMINE
     Indication: NEUROSARCOIDOSIS
  9. GADOVIST [Suspect]
     Active Substance: GADOBUTROL
     Indication: MAGNETIC RESONANCE IMAGING NECK
  10. MAGNEVIST [Suspect]
     Active Substance: GADOPENTETATE DIMEGLUMINE
     Indication: SARCOIDOSIS
     Dosage: MAGNEVIST 11 ML.
     Route: 042
     Dates: start: 20101021, end: 20101021
  11. MAGNEVISION [Suspect]
     Active Substance: GADOPENTETATE DIMEGLUMINE
     Indication: NEUROSARCOIDOSIS
     Dosage: 15 ML
     Route: 042
     Dates: start: 20120408
  12. MAGNEVISION [Suspect]
     Active Substance: GADOPENTETATE DIMEGLUMINE
     Indication: MAGNETIC RESONANCE IMAGING BRAIN
  13. MAGNEVIST [Suspect]
     Active Substance: GADOPENTETATE DIMEGLUMINE
     Indication: MAGNETIC RESONANCE IMAGING BRAIN
  14. GADOVIST [Suspect]
     Active Substance: GADOBUTROL
     Indication: SARCOIDOSIS
  15. DOTAREM [Suspect]
     Active Substance: GADOTERATE MEGLUMINE
     Indication: MAGNETIC RESONANCE IMAGING BRAIN
     Dosage: 12 ML I.V.
     Route: 042
     Dates: start: 20120402

REACTIONS (16)
  - Sudden onset of sleep [Not Recovered/Not Resolved]
  - Spinal pain [Not Recovered/Not Resolved]
  - Fatigue [Not Recovered/Not Resolved]
  - Extrasystoles [Not Recovered/Not Resolved]
  - Back pain [Not Recovered/Not Resolved]
  - Muscle twitching [Recovered/Resolved]
  - Memory impairment [Not Recovered/Not Resolved]
  - Headache [Not Recovered/Not Resolved]
  - Musculoskeletal stiffness [Not Recovered/Not Resolved]
  - Palpitations [Not Recovered/Not Resolved]
  - Vision blurred [Not Recovered/Not Resolved]
  - Arrhythmia [Not Recovered/Not Resolved]
  - Adverse event [Not Recovered/Not Resolved]
  - Asthenia [Not Recovered/Not Resolved]
  - Disturbance in attention [Not Recovered/Not Resolved]
  - Myalgia [Not Recovered/Not Resolved]

NARRATIVE: CASE EVENT DATE: 2011
